FAERS Safety Report 21701016 (Version 1)
Quarter: 2022Q4

REPORT INFORMATION
  Report Type: Spontaneous
  Country: US (occurrence: None)
  Receive Date: 20221207
  Receipt Date: 20221207
  Transmission Date: 20230113
  Serious: Yes (Hospitalization)
  Sender: FDA-Public Use
  Company Number: None

PATIENT
  Age: 65 Year
  Sex: Male
  Weight: 104 kg

DRUGS (1)
  1. CABOZANTINIB [Suspect]
     Active Substance: CABOZANTINIB
     Indication: Metastatic renal cell carcinoma
     Dosage: 1 TAB EVERY DAY PO?
     Route: 048
     Dates: start: 20220909, end: 20221009

REACTIONS (2)
  - Posterior reversible encephalopathy syndrome [None]
  - Central nervous system infection [None]

NARRATIVE: CASE EVENT DATE: 20221011
